FAERS Safety Report 6721587-X (Version None)
Quarter: 2010Q2

REPORT INFORMATION
  Report Type: 
  Country: None (occurrence: None)
  Receive Date: 20100512
  Receipt Date: 20100428
  Transmission Date: 20101027
  Serious: Yes (Hospitalization)
  Sender: FDA-Public Use
  Company Number: PHHY2010MX27414

PATIENT
  Sex: Female

DRUGS (6)
  1. RASILEZ [Suspect]
     Indication: HYPERTENSION
     Dosage: 300 MG, QD
     Route: 048
     Dates: start: 20090401
  2. CRESTOR [Concomitant]
  3. OMEPRAZOLE [Concomitant]
  4. LOSARTAN POTASSIUM [Concomitant]
  5. COMPLEJO B [Concomitant]
  6. FUROSEMIDE [Concomitant]

REACTIONS (1)
  - RENAL DISORDER [None]
